FAERS Safety Report 19712609 (Version 1)
Quarter: 2021Q3

REPORT INFORMATION
  Report Type: Report from Study
  Country: US (occurrence: US)
  Receive Date: 20210816
  Receipt Date: 20210816
  Transmission Date: 20211014
  Serious: No
  Sender: FDA-Public Use
  Company Number: US-SUNOVION-2021SUN002950

PATIENT
  Sex: Female

DRUGS (1)
  1. LATUDA [Suspect]
     Active Substance: LURASIDONE HYDROCHLORIDE
     Dosage: 20 MG
     Route: 048

REACTIONS (12)
  - Orthostatic hypotension [Unknown]
  - Anxiety [Unknown]
  - Nausea [Unknown]
  - Muscle twitching [Unknown]
  - Hot flush [Unknown]
  - Confusional state [Unknown]
  - Alcohol intolerance [Unknown]
  - Salivary hypersecretion [Unknown]
  - Dyspepsia [Unknown]
  - Memory impairment [Unknown]
  - Polydipsia [Unknown]
  - Irritability [Unknown]
